FAERS Safety Report 6833620-5 (Version None)
Quarter: 2010Q3

REPORT INFORMATION
  Report Type: 
  Country: None (occurrence: None)
  Receive Date: 20100712
  Receipt Date: 20070606
  Transmission Date: 20110219
  Serious: No
  Sender: FDA-Public Use
  Company Number: US-PFIZER INC-2007026673

PATIENT
  Sex: Female
  Weight: 61.23 kg

DRUGS (10)
  1. CHANTIX [Suspect]
     Indication: SMOKING CESSATION THERAPY
     Dates: start: 20070317, end: 20070326
  2. BENICAR [Concomitant]
  3. ALL OTHER THERAPEUTIC PRODUCTS [Concomitant]
  4. LEVOTHYROXINE [Concomitant]
  5. NORCO [Concomitant]
  6. CLONAZEPAM [Concomitant]
  7. BUSPAR [Concomitant]
  8. ALL OTHER THERAPEUTIC PRODUCTS [Concomitant]
  9. FLONASE [Concomitant]
     Route: 055
  10. ALL OTHER THERAPEUTIC PRODUCTS [Concomitant]
     Route: 055

REACTIONS (3)
  - PRURITUS [None]
  - URTICARIA [None]
  - VOMITING [None]
